FAERS Safety Report 8586262-8 (Version None)
Quarter: 2012Q3

REPORT INFORMATION
  Report Type: 
  Country: None (occurrence: None)
  Receive Date: 20120810
  Receipt Date: 20120802
  Transmission Date: 20120928
  Serious: Yes (Other)
  Sender: FDA-Public Use
  Company Number: GR-ROCHE-1096578

PATIENT
  Age: 50 Year
  Sex: Female

DRUGS (2)
  1. HERCEPTIN [Suspect]
     Indication: METASTASES TO LIVER
  2. HERCEPTIN [Suspect]

REACTIONS (9)
  - VOMITING [None]
  - ERYTHEMA [None]
  - OSTEOARTHRITIS [None]
  - HYPERSENSITIVITY [None]
  - PRURITUS [None]
  - PAIN [None]
  - GAIT DISTURBANCE [None]
  - SOMNOLENCE [None]
  - DIZZINESS [None]
